FAERS Safety Report 7585491-X (Version None)
Quarter: 2011Q3

REPORT INFORMATION
  Report Type: 
  Country: None (occurrence: None)
  Receive Date: 20110701
  Receipt Date: 20110615
  Transmission Date: 20111222
  Serious: No
  Sender: FDA-Public Use
  Company Number: US-B.I. PHARMACEUTICALS,INC./RIDGEFIELD-2011-BP-05755BP

PATIENT
  Sex: Female

DRUGS (9)
  1. FLUCONAZOLE [Concomitant]
  2. PRADAXA [Suspect]
     Indication: ANTICOAGULANT THERAPY
     Dosage: 300 MG
     Route: 048
     Dates: start: 20110226
  3. PRADAXA [Suspect]
     Indication: HYPERTENSION
  4. OXYBUTYNIN [Concomitant]
  5. TRAVATAN [Concomitant]
     Indication: GLAUCOMA
  6. DILTIAZEM [Concomitant]
     Indication: HEART RATE IRREGULAR
     Dosage: 240 MG
  7. CARVEDILOL [Concomitant]
     Indication: HEART RATE IRREGULAR
     Dosage: 6.25 MG
  8. NITROGLYCERIN [Concomitant]
     Indication: ANGINA PECTORIS
  9. GENTEAL [Concomitant]
     Indication: DRY EYE

REACTIONS (3)
  - CHEST PAIN [None]
  - BRONCHITIS [None]
  - WHEEZING [None]
